FAERS Safety Report 13285113 (Version 1)
Quarter: 2017Q1

REPORT INFORMATION
  Report Type: Spontaneous
  Country: US (occurrence: US)
  Receive Date: 20170301
  Receipt Date: 20170301
  Transmission Date: 20170428
  Serious: Yes (Death)
  Sender: FDA-Public Use
  Company Number: None

PATIENT
  Age: 33 Year
  Sex: Male

DRUGS (2)
  1. MEKINIST [Suspect]
     Active Substance: TRAMETINIB DIMETHYL SULFOXIDE
     Indication: CYSTIC FIBROSIS
     Route: 048
     Dates: start: 20161202
  2. TAFINLAR [Suspect]
     Active Substance: DABRAFENIB MESYLATE
     Indication: CYSTIC FIBROSIS
     Route: 048
     Dates: start: 20161202

REACTIONS (2)
  - Pulmonary embolism [None]
  - Transplantation complication [None]
